FAERS Safety Report 7288379-7 (Version None)
Quarter: 2011Q1

REPORT INFORMATION
  Report Type: 
  Country: None (occurrence: None)
  Receive Date: 20110211
  Receipt Date: 20110209
  Transmission Date: 20110831
  Serious: Yes (Hospitalization)
  Sender: FDA-Public Use
  Company Number: A0757947A

PATIENT
  Age: 69 Year
  Sex: Female
  Weight: 84.1 kg

DRUGS (11)
  1. LASIX [Concomitant]
  2. TRICOR [Concomitant]
  3. SYNTHROID [Concomitant]
  4. AVANDIA [Suspect]
     Dosage: 4MG TWICE PER DAY
     Route: 048
     Dates: start: 20061201, end: 20070531
  5. PREVACID [Concomitant]
  6. DUONEB [Concomitant]
  7. K-DUR [Concomitant]
  8. AROMASIN [Concomitant]
  9. TOPROL-XL [Concomitant]
  10. GLUCOTROL [Concomitant]
  11. ALTACE [Concomitant]

REACTIONS (6)
  - CARDIAC FAILURE CONGESTIVE [None]
  - DEEP VEIN THROMBOSIS [None]
  - ATRIAL FIBRILLATION [None]
  - PULMONARY EMBOLISM [None]
  - CORONARY ARTERY DISEASE [None]
  - MYOCARDIAL INFARCTION [None]
